FAERS Safety Report 19487538 (Version 1)
Quarter: 2021Q3

REPORT INFORMATION
  Report Type: Report from Study
  Country: BR (occurrence: BR)
  Receive Date: 20210702
  Receipt Date: 20210702
  Transmission Date: 20211014
  Serious: Yes (Other)
  Sender: FDA-Public Use
  Company Number: NVSC2021BR144091

PATIENT
  Sex: Female

DRUGS (1)
  1. ENTRESTO [Suspect]
     Active Substance: SACUBITRIL\VALSARTAN
     Indication: PRODUCT USED FOR UNKNOWN INDICATION
     Dosage: 97/103 MG, 3 MONTHS AGO
     Route: 065

REACTIONS (4)
  - Influenza [Recovered/Resolved]
  - Deafness [Recovered/Resolved]
  - Dysphonia [Recovered/Resolved]
  - Hypoacusis [Unknown]
